FAERS Safety Report 5886111-2 (Version None)
Quarter: 2008Q3

REPORT INFORMATION
  Report Type: 
  Country: None (occurrence: None)
  Receive Date: 20080917
  Receipt Date: 20080910
  Transmission Date: 20090109
  Serious: Yes (Other)
  Sender: FDA-Public Use
  Company Number: US-ASTRAZENECA-2008AC02467

PATIENT
  Age: 45 Year
  Sex: Male

DRUGS (2)
  1. LIDOCAINE [Suspect]
     Indication: VENTRICULAR TACHYCARDIA
  2. LIDOCAINE [Suspect]
     Route: 042

REACTIONS (1)
  - BRUGADA SYNDROME [None]
